FAERS Safety Report 25274111 (Version 2)
Quarter: 2025Q2

REPORT INFORMATION
  Report Type: Report from Study
  Country: US (occurrence: US)
  Receive Date: 20250506
  Receipt Date: 20250515
  Transmission Date: 20250716
  Serious: Yes (Other)
  Sender: TEVA
  Company Number: US-TEVA-VS-3327980

PATIENT
  Age: 15 Year
  Sex: Female

DRUGS (1)
  1. CLARAVIS [Suspect]
     Active Substance: ISOTRETINOIN
     Indication: Product used for unknown indication
     Route: 065
     Dates: start: 20241023, end: 20250326

REACTIONS (2)
  - Mood altered [Not Recovered/Not Resolved]
  - Pregnancy test false positive [Unknown]

NARRATIVE: CASE EVENT DATE: 20250101
